FAERS Safety Report 16315997 (Version 8)
Quarter: 2020Q4

REPORT INFORMATION
  Report Type: Spontaneous
  Country: US (occurrence: US)
  Receive Date: 20190515
  Receipt Date: 20201228
  Transmission Date: 20210113
  Serious: No
  Sender: FDA-Public Use
  Company Number: US-SA-2019SA126850

PATIENT

DRUGS (24)
  1. FABRAZYME [Suspect]
     Active Substance: AGALSIDASE BETA
     Indication: LIPIDOSIS
     Dosage: 0.82 MG/KG, QOW
     Route: 041
     Dates: start: 20190405
  2. DIPHENHYDRAMINE. [Concomitant]
     Active Substance: DIPHENHYDRAMINE
     Indication: ANAPHYLACTIC REACTION
     Dosage: 12.5 MG, PRN
     Route: 048
     Dates: start: 20190419
  3. VITAMIN D3 [Concomitant]
     Active Substance: CHOLECALCIFEROL
     Dosage: 1 CAP, QD
     Route: 048
     Dates: start: 20190419
  4. VITAMIN D3 [Concomitant]
     Active Substance: CHOLECALCIFEROL
     Dosage: 1 CAP; QD
     Route: 048
     Dates: start: 20190405
  5. MEDROL [Concomitant]
     Active Substance: METHYLPREDNISOLONE
     Indication: ANAPHYLACTIC REACTION
     Dosage: 25 MG, PRN
     Route: 042
     Dates: start: 20151110
  6. IBUPROFEN. [Concomitant]
     Active Substance: IBUPROFEN
     Dosage: 1 DF, PRN
     Route: 048
     Dates: start: 20190725
  7. CHILDREN^S MULTIVITAMIN [Concomitant]
  8. DIPHENHYDRAMINE. [Concomitant]
     Active Substance: DIPHENHYDRAMINE
     Dosage: 12.5 MG, PRN
     Route: 048
     Dates: start: 20190405
  9. NORMAL SALINE [Concomitant]
     Active Substance: SODIUM CHLORIDE
     Dosage: 0.9 %; UNK
     Route: 042
     Dates: start: 20190405
  10. CORTISPORIN-TC [Concomitant]
     Active Substance: COLISTIN SULFATE\HYDROCORTISONE ACETATE\NEOMYCIN SULFATE\THONZONIUM BROMIDE
  11. ACETAMINOPHEN. [Concomitant]
     Active Substance: ACETAMINOPHEN
     Indication: PREMEDICATION
     Dosage: 325 MG
     Route: 048
     Dates: start: 20190419
  12. VITAMINS NOS [Concomitant]
     Active Substance: VITAMINS
     Dosage: 2 TAB, QD
     Route: 048
     Dates: start: 20160122
  13. CLARITIN [CLARITHROMYCIN] [Concomitant]
     Active Substance: CLARITHROMYCIN
     Indication: PREMEDICATION
     Dosage: 10MG, UNK
     Route: 048
     Dates: start: 20151111
  14. SOLU-MEDROL [Concomitant]
     Active Substance: METHYLPREDNISOLONE SODIUM SUCCINATE
     Indication: ANAPHYLACTIC REACTION
     Dosage: 1 MG/KG, PRN
     Route: 042
     Dates: start: 20190405
  15. LMX4 [Concomitant]
     Active Substance: LIDOCAINE
     Dosage: 4 %
     Route: 061
     Dates: start: 20190405
  16. VITAMIN C [Concomitant]
     Active Substance: ASCORBIC ACID
  17. FABRAZYME [Suspect]
     Active Substance: AGALSIDASE BETA
     Indication: FABRY^S DISEASE
     Dosage: 1.04 MG/KG, QOW (65MG)
     Route: 041
     Dates: start: 20150423
  18. EPINEPHRINE. [Concomitant]
     Active Substance: EPINEPHRINE
     Indication: ANAPHYLACTIC REACTION
     Dosage: 0.3 MG, PRN
     Route: 030
     Dates: start: 20190405
  19. LORATADINE. [Concomitant]
     Active Substance: LORATADINE
  20. ACETAMINOPHEN. [Concomitant]
     Active Substance: ACETAMINOPHEN
     Dosage: 1 TAB, PRN
     Route: 048
     Dates: start: 20190725
  21. NORMAL SALINE [Concomitant]
     Active Substance: SODIUM CHLORIDE
     Dosage: 0.9 %; UNK
     Route: 042
     Dates: start: 20190419
  22. STERILE WATER [Concomitant]
     Active Substance: WATER
     Dosage: 1 EACH
     Route: 042
     Dates: start: 20190405
  23. AMOXICILLIN AND CLAVULANATE POTASSIU. [Concomitant]
     Active Substance: AMOXICILLIN\CLAVULANATE POTASSIUM
  24. FABRAZYME [Suspect]
     Active Substance: AGALSIDASE BETA
     Dosage: 0.89 MG/KG, QOW
     Route: 041

REACTIONS (8)
  - Fatigue [Unknown]
  - Throat irritation [Unknown]
  - Anaemia [Unknown]
  - Pain [Recovered/Resolved]
  - Dyspnoea exertional [Unknown]
  - Blood triglycerides increased [Unknown]
  - Neuralgia [Not Recovered/Not Resolved]
  - Paraesthesia [Recovered/Resolved]

NARRATIVE: CASE EVENT DATE: 20190419
